FAERS Safety Report 21660120 (Version 2)
Quarter: 2022Q4

REPORT INFORMATION
  Report Type: Spontaneous
  Country: US (occurrence: US)
  Receive Date: 20221130
  Receipt Date: 20221214
  Transmission Date: 20230113
  Serious: Yes (Hospitalization, Other)
  Sender: FDA-Public Use
  Company Number: US-BRISTOL-MYERS SQUIBB COMPANY-2022-144221

PATIENT
  Age: 76 Year
  Sex: Male
  Weight: 67.12 kg

DRUGS (17)
  1. REVLIMID [Suspect]
     Active Substance: LENALIDOMIDE
     Indication: Product used for unknown indication
  2. JAKAFI [Suspect]
     Active Substance: RUXOLITINIB
     Indication: Myelofibrosis
     Route: 048
     Dates: start: 20190225
  3. JAKAFI [Suspect]
     Active Substance: RUXOLITINIB
     Route: 048
  4. JAKAFI [Suspect]
     Active Substance: RUXOLITINIB
     Route: 048
     Dates: start: 20190225
  5. JAKAFI [Suspect]
     Active Substance: RUXOLITINIB
     Route: 048
     Dates: start: 20190225
  6. JAKAFI [Suspect]
     Active Substance: RUXOLITINIB
     Route: 048
     Dates: start: 20190225
  7. JAKAFI [Suspect]
     Active Substance: RUXOLITINIB
     Route: 048
     Dates: start: 20190225
  8. JAKAFI [Suspect]
     Active Substance: RUXOLITINIB
     Route: 048
     Dates: start: 20190225
  9. JAKAFI [Suspect]
     Active Substance: RUXOLITINIB
     Route: 048
     Dates: start: 20190225
  10. JAKAFI [Suspect]
     Active Substance: RUXOLITINIB
     Route: 048
     Dates: start: 20190225
  11. JAKAFI [Suspect]
     Active Substance: RUXOLITINIB
     Route: 048
     Dates: start: 20190225
  12. JAKAFI [Suspect]
     Active Substance: RUXOLITINIB
     Dosage: ONCE DAILY ALTERNATING WITH 10MG TWICE DAILY
     Route: 048
     Dates: start: 20190225
  13. JAKAFI [Suspect]
     Active Substance: RUXOLITINIB
     Dosage: ONCE DAILY ALTERNATING WITH 10MG TWICE DAILY
     Route: 048
     Dates: start: 20190225
  14. JAKAFI [Suspect]
     Active Substance: RUXOLITINIB
     Route: 048
     Dates: start: 20190225
  15. JAKAFI [Suspect]
     Active Substance: RUXOLITINIB
     Route: 048
     Dates: start: 20190225
  16. JAKAFI [Suspect]
     Active Substance: RUXOLITINIB
     Route: 048
     Dates: start: 20190225
  17. JAKAFI [Suspect]
     Active Substance: RUXOLITINIB
     Route: 048
     Dates: start: 20190225

REACTIONS (17)
  - Pneumonia [Unknown]
  - Portal vein thrombosis [Unknown]
  - Varices oesophageal [Unknown]
  - Pulmonary fibrosis [Unknown]
  - Platelet count decreased [Unknown]
  - Malignant neoplasm progression [Unknown]
  - Sluggishness [Unknown]
  - Liver disorder [Unknown]
  - Splenomegaly [Unknown]
  - Dizziness [Unknown]
  - Anaemia [Recovered/Resolved]
  - Dyspnoea [Unknown]
  - Cataract [Unknown]
  - Depressed mood [Unknown]
  - Vertigo [Unknown]
  - Nausea [Unknown]
  - Nephrolithiasis [Unknown]
